FAERS Safety Report 15259288 (Version 1)
Quarter: 2018Q3

REPORT INFORMATION
  Report Type: Spontaneous
  Country: US (occurrence: US)
  Receive Date: 20180719
  Receipt Date: 20180719
  Transmission Date: 20181010
  Serious: No
  Sender: FDA-Public Use
  Company Number: None

PATIENT
  Age: 63 Year
  Sex: Male
  Weight: 86.4 kg

DRUGS (6)
  1. XANAX [Concomitant]
     Active Substance: ALPRAZOLAM
  2. TURMERIC [Concomitant]
     Active Substance: HERBALS\TURMERIC
  3. GLUCOSAMINE [Concomitant]
     Active Substance: GLUCOSAMINE
  4. COQ10 [Concomitant]
     Active Substance: UBIDECARENONE
  5. PROPRANOLOL [Concomitant]
     Active Substance: PROPRANOLOL HYDROCHLORIDE
  6. CREST PRO?HEALTH RINSE [Suspect]
     Active Substance: CETYLPYRIDINIUM CHLORIDE
     Indication: DENTAL DISORDER PROPHYLAXIS
     Dosage: ORAL, TWICE A DAY, 2 TEASPOONS?
     Route: 048

REACTIONS (1)
  - Ageusia [None]

NARRATIVE: CASE EVENT DATE: 20180707
